FAERS Safety Report 13972460 (Version 1)
Quarter: 2017Q3

REPORT INFORMATION
  Report Type: Spontaneous
  Country: US (occurrence: US)
  Receive Date: 20170915
  Receipt Date: 20170915
  Transmission Date: 20171128
  Serious: Yes (Hospitalization, Other)
  Sender: FDA-Public Use
  Company Number: US-009507513-1709USA004121

PATIENT
  Age: 86 Year
  Sex: Female

DRUGS (2)
  1. ZOCOR [Suspect]
     Active Substance: SIMVASTATIN
     Dosage: ONCE PER DAY
     Route: 048
  2. DULERA [Suspect]
     Active Substance: FORMOTEROL FUMARATE DIHYDRATE\MOMETASONE FUROATE
     Dosage: 100 MG TWICE PER DAY
     Dates: start: 2016

REACTIONS (10)
  - Depression [Unknown]
  - Thrombosis [Recovered/Resolved]
  - Rhinorrhoea [Unknown]
  - Dyspnoea [Unknown]
  - Dysphonia [Unknown]
  - Blood pressure abnormal [Unknown]
  - Seasonal allergy [Unknown]
  - Product quality issue [Unknown]
  - Thyroid disorder [Unknown]
  - Drug dose omission [Unknown]

NARRATIVE: CASE EVENT DATE: 201704
